FAERS Safety Report 8223911-8 (Version None)
Quarter: 2012Q1

REPORT INFORMATION
  Report Type: 
  Country: None (occurrence: None)
  Receive Date: 20120321
  Receipt Date: 20120313
  Transmission Date: 20120608
  Serious: Yes (Hospitalization, Other)
  Sender: FDA-Public Use
  Company Number: MX-SANOFI-AVENTIS-2012SA017278

PATIENT
  Age: 63 Year
  Sex: Female
  Weight: 73 kg

DRUGS (6)
  1. HUMALOG [Suspect]
     Route: 058
     Dates: start: 20110901
  2. LANTUS [Suspect]
     Indication: TYPE 2 DIABETES MELLITUS
     Route: 058
     Dates: start: 20090101, end: 20110201
  3. MICARDIS [Concomitant]
     Route: 048
     Dates: start: 20040101
  4. ASPIRIN [Concomitant]
     Route: 048
  5. HUMALOG [Suspect]
     Indication: TYPE 2 DIABETES MELLITUS
     Route: 058
     Dates: start: 20090101, end: 20110901
  6. LANTUS [Suspect]
     Route: 058
     Dates: start: 20110201, end: 20110901

REACTIONS (2)
  - HYPERGLYCAEMIA [None]
  - CHOLECYSTITIS CHRONIC [None]
